FAERS Safety Report 25536743 (Version 2)
Quarter: 2025Q3

REPORT INFORMATION
  Report Type: Spontaneous
  Country: RU (occurrence: RU)
  Receive Date: 20250710
  Receipt Date: 20250731
  Transmission Date: 20251020
  Serious: Yes (Other)
  Sender: ALEXION PHARMACEUTICALS
  Company Number: RU-AstraZeneca-CH-00903985A

PATIENT
  Sex: Male
  Weight: 80 kg

DRUGS (2)
  1. FASENRA [Suspect]
     Active Substance: BENRALIZUMAB
     Indication: Asthma
     Dosage: 30 MILLIGRAM, Q8W
     Route: 065
     Dates: start: 2021, end: 202504
  2. FASENRA [Suspect]
     Active Substance: BENRALIZUMAB

REACTIONS (11)
  - Pyrexia [Recovered/Resolved]
  - Asphyxia [Unknown]
  - Autoimmune disorder [Recovered/Resolved]
  - Asthenia [Unknown]
  - Conjunctivitis [Unknown]
  - Gastritis [Unknown]
  - Rhinitis [Unknown]
  - Dyspnoea [Unknown]
  - Sinusitis [Unknown]
  - Blood immunoglobulin E increased [Unknown]
  - Petechiae [Recovered/Resolved]
